FAERS Safety Report 6262396-8 (Version None)
Quarter: 2009Q3

REPORT INFORMATION
  Report Type: 
  Country: None (occurrence: None)
  Receive Date: 20090709
  Receipt Date: 20090703
  Transmission Date: 20100115
  Serious: Yes (Hospitalization)
  Sender: FDA-Public Use
  Company Number: CA-JNJFOC-20090701386

PATIENT
  Age: 83 Year
  Sex: Male
  Weight: 65 kg

DRUGS (6)
  1. RISPERDAL [Suspect]
     Indication: DRUG USE FOR UNKNOWN INDICATION
     Dosage: THERAPY DURATION 108 DAYS
     Route: 048
  2. DILANTIN [Suspect]
     Indication: DRUG USE FOR UNKNOWN INDICATION
     Dosage: THERAPY DURATION 37 DAYS  DILANTIN-125 SUSPENSION
     Route: 048
  3. LEVOFLOXACIN [Suspect]
     Indication: DRUG USE FOR UNKNOWN INDICATION
     Route: 065
  4. ACETAMINOPHEN [Concomitant]
     Route: 065
  5. LACTULOSE [Concomitant]
     Indication: DRUG USE FOR UNKNOWN INDICATION
     Route: 065
  6. SENNA [Concomitant]
     Indication: DRUG USE FOR UNKNOWN INDICATION
     Route: 065

REACTIONS (5)
  - ABDOMINAL DISCOMFORT [None]
  - AGRANULOCYTOSIS [None]
  - BODY TEMPERATURE INCREASED [None]
  - LEUKOPENIA [None]
  - TACHYCARDIA [None]
